FAERS Safety Report 4610074-0 (Version None)
Quarter: 2005Q1

REPORT INFORMATION
  Report Type: 
  Country: None (occurrence: None)
  Receive Date: 20050316
  Receipt Date: 20050304
  Transmission Date: 20050727
  Serious: Yes (Congenital Anomaly, Other)
  Sender: FDA-Public Use
  Company Number: PHBS2005US03633

PATIENT
  Sex: 0

DRUGS (3)
  1. CARBAMAZEPINE [Suspect]
     Route: 064
  2. VALPROIC ACID [Suspect]
     Route: 064
  3. FOLIC ACID [Concomitant]

REACTIONS (19)
  - ABNORMAL BEHAVIOUR [None]
  - AUTISM [None]
  - BREECH PRESENTATION [None]
  - CAESAREAN SECTION [None]
  - CARDIAC MURMUR [None]
  - COMMUNICATION DISORDER [None]
  - CONGENITAL NOSE MALFORMATION [None]
  - DRUG EXPOSURE DURING PREGNANCY [None]
  - EAR DEFORMITY ACQUIRED [None]
  - ECHOLALIA [None]
  - FACIAL DYSMORPHISM [None]
  - FOETAL VALPROATE SYNDROME [None]
  - HYPERREFLEXIA [None]
  - HYPERSENSITIVITY [None]
  - HYPERTELORISM OF ORBIT [None]
  - HYPOTONIA [None]
  - NAIL DISORDER [None]
  - SINUSITIS [None]
  - SKULL MALFORMATION [None]
